FAERS Safety Report 12206037 (Version 1)
Quarter: 2016Q1

REPORT INFORMATION
  Report Type: Other
  Country: ES (occurrence: ES)
  Receive Date: 20160323
  Receipt Date: 20160323
  Transmission Date: 20160526
  Serious: Yes (Other)
  Sender: FDA-Public Use
  Company Number: ES-VALIDUS PHARMACEUTICALS LLC-ES-2016VAL000543

PATIENT
  Age: 93 Year
  Sex: Female

DRUGS (13)
  1. PANTOPRAZOL [Suspect]
     Active Substance: PANTOPRAZOLE SODIUM
     Indication: PROPHYLAXIS
     Dosage: 20 MG, DAILY
     Route: 048
     Dates: start: 20150618
  2. SEVIKAR [Concomitant]
     Active Substance: AMLODIPINE BESYLATE\OLMESARTAN MEDOXOMIL
     Indication: HYPERTENSION
  3. LEVEMIR [Concomitant]
     Active Substance: INSULIN DETEMIR
     Indication: DIABETES MELLITUS
  4. FUROSEMIDE. [Suspect]
     Active Substance: FUROSEMIDE
     Indication: CARDIAC FAILURE
     Dosage: 10 MG, TID
     Route: 048
     Dates: start: 20150618, end: 20150619
  5. FUROSEMIDE. [Suspect]
     Active Substance: FUROSEMIDE
     Dosage: UNK
     Route: 048
  6. PARACETAMOL [Suspect]
     Active Substance: ACETAMINOPHEN
     Indication: PYREXIA
     Dosage: 1 G, PRN
     Route: 048
     Dates: start: 20150618, end: 20150701
  7. SINTROM [Suspect]
     Active Substance: ACENOCOUMAROL
     Indication: ATRIAL FIBRILLATION
     Dosage: UNK, PRN
     Route: 048
     Dates: end: 20150624
  8. EZETROL [Concomitant]
     Active Substance: EZETIMIBE
     Indication: HYPERCHOLESTEROLAEMIA
  9. VENTOLIN [Suspect]
     Active Substance: ALBUTEROL SULFATE
     Indication: HYPOXIA
     Dosage: UNK, PRN
     Dates: start: 20150619, end: 20150625
  10. DOXIUM [Concomitant]
     Indication: PERIPHERAL VENOUS DISEASE
  11. LEVOFLOXACIN. [Suspect]
     Active Substance: LEVOFLOXACIN
     Indication: RESPIRATORY TRACT INFECTION
     Dosage: 500 MG, DAILY
     Route: 048
     Dates: start: 20150618, end: 20150623
  12. PREDNISONA [Suspect]
     Active Substance: PREDNISONE
     Indication: HYPOXIA
     Dosage: 25 MG, BID
     Route: 048
     Dates: start: 20150618, end: 20150625
  13. SERETIDE [Suspect]
     Active Substance: FLUTICASONE FUROATE\SALMETEROL XINAFOATE
     Indication: HYPOXIA
     Dosage: 2 DF, BID; INHALATIONAL
     Dates: start: 20150619, end: 20150625

REACTIONS (1)
  - Neutropenia [Recovered/Resolved]

NARRATIVE: CASE EVENT DATE: 20150623
